FAERS Safety Report 7760655-0 (Version None)
Quarter: 2011Q3

REPORT INFORMATION
  Report Type: 
  Country: None (occurrence: None)
  Receive Date: 20110919
  Receipt Date: 20110913
  Transmission Date: 20111222
  Serious: Yes (Life-Threatening, Other)
  Sender: FDA-Public Use
  Company Number: NL-PFIZER INC-2011215211

PATIENT
  Age: 57 Year
  Sex: Male
  Weight: 111 kg

DRUGS (17)
  1. LEVOTHYROXINE [Concomitant]
     Indication: BLOOD THYROID STIMULATING HORMONE DECREASED
     Dosage: 160 MG, 1X/DAY
     Dates: start: 20031107
  2. PRILOSEC [Concomitant]
     Dosage: 40 MG, 1X/DAY
     Route: 048
     Dates: start: 20110110
  3. FERROGRADUMET [Concomitant]
     Dosage: 105 MG, 1X/DAY
     Route: 048
     Dates: start: 20090928
  4. ANDROGEL [Concomitant]
     Indication: BLOOD FOLLICLE STIMULATING HORMONE DECREASED
  5. SYMBICORT [Concomitant]
     Dosage: 40 UNIT, 2X/DAY
     Dates: start: 20100705
  6. ANDROGEL [Concomitant]
     Indication: BLOOD LUTEINISING HORMONE DECREASED
     Dosage: 50 MG, 1X/DAY
     Dates: start: 20060801
  7. ALENDRONIC ACID [Concomitant]
     Dosage: 70 MG, WEEKLY
     Dates: start: 20050701
  8. IPRATROPIUM [Concomitant]
     Dosage: UNK
     Dates: start: 20060717
  9. SOMATROPIN RDNA [Suspect]
     Indication: HYPOPITUITARISM
     Dosage: 0.5 MG, 1X/DAY
     Dates: start: 20030724, end: 20110807
  10. DESLORATADINE [Concomitant]
     Indication: ANTIALLERGIC THERAPY
     Dosage: 1X/DAY
     Dates: start: 20070129
  11. ACENOCOUMAROL [Concomitant]
     Dosage: UNK
     Dates: start: 20050801
  12. FERROGRADUMET [Concomitant]
     Indication: ANAEMIA
     Dosage: 210 MG, 1X/DAY
     Dates: start: 20070130
  13. TRAMADOL HYDROCHLORIDE [Concomitant]
     Indication: ANALGESIC THERAPY
     Dosage: 2X/DAY
     Dates: start: 20070130
  14. TOLBUTAMIDE [Concomitant]
     Indication: DIABETES MELLITUS
     Dosage: 2X/DAY
     Dates: start: 20070129
  15. DESMOPRESSIN [Concomitant]
     Indication: BLOOD ANTIDIURETIC HORMONE DECREASED
     Dosage: 0.25 UG, 2X/DAY
     Dates: start: 20010701
  16. CORTISONE ACETATE [Concomitant]
     Indication: BLOOD CORTICOTROPHIN DECREASED
     Dosage: 37.5 MG, 1X/DAY
     Dates: start: 20060718
  17. ESOMEPRAZOLE [Concomitant]
     Dosage: 80 MG, 2X/DAY
     Dates: start: 20030731

REACTIONS (2)
  - METASTASES TO LIVER [None]
  - NEOPLASM MALIGNANT [None]
